FAERS Safety Report 6174304-9 (Version None)
Quarter: 2009Q2

REPORT INFORMATION
  Report Type: 
  Country: None (occurrence: None)
  Receive Date: 20090430
  Receipt Date: 20080508
  Transmission Date: 20091009
  Serious: No
  Sender: FDA-Public Use
  Company Number: US-ASTRAZENECA-2008UW09498

PATIENT
  Age: 53 Year
  Sex: Female

DRUGS (5)
  1. NEXIUM [Suspect]
     Indication: WHEEZING
     Route: 048
     Dates: start: 20080425
  2. CRESTOR [Concomitant]
  3. FOSINOPRIL SODIUM [Concomitant]
  4. INDERAL [Concomitant]
  5. THYROID TAB [Concomitant]

REACTIONS (1)
  - ORAL PAIN [None]
